FAERS Safety Report 24761810 (Version 1)
Quarter: 2024Q4

REPORT INFORMATION
  Report Type: Spontaneous
  Country: FR (occurrence: FR)
  Receive Date: 20241221
  Receipt Date: 20241221
  Transmission Date: 20250115
  Serious: Yes (Hospitalization, Other)
  Sender: AUROBINDO
  Company Number: FR-AFSSAPS-RE2024001232

PATIENT
  Age: 82 Year
  Sex: Female
  Weight: 53 kg

DRUGS (4)
  1. ANAGRELIDE [Suspect]
     Active Substance: ANAGRELIDE
     Indication: Essential thrombocythaemia
     Dosage: 2 MILLIGRAM, ONCE A DAY
     Route: 048
     Dates: start: 20240913, end: 20241002
  2. FUROSEMIDE [Suspect]
     Active Substance: FUROSEMIDE
     Indication: Cardiac failure
     Dosage: UNK
     Route: 065
  3. OMNIPAQUE [Suspect]
     Active Substance: IOHEXOL
     Indication: Scan with contrast
     Dosage: 30 MILLILITER, 1 TOTAL
     Route: 042
     Dates: start: 20240920, end: 20240920
  4. HYDREA [Suspect]
     Active Substance: HYDROXYUREA
     Indication: Essential thrombocythaemia
     Dosage: 500 MILLIGRAM, ONCE A DAY
     Route: 048
     Dates: start: 20240913, end: 20241002

REACTIONS (1)
  - Acute kidney injury [Recovering/Resolving]

NARRATIVE: CASE EVENT DATE: 20240901
